FAERS Safety Report 9927951 (Version 1)
Quarter: 2014Q1

REPORT INFORMATION
  Report Type: Spontaneous
  Country: US (occurrence: US)
  Receive Date: 20140227
  Receipt Date: 20140227
  Transmission Date: 20141002
  Serious: No
  Sender: FDA-Public Use
  Company Number: US-PFIZER INC-2014056230

PATIENT
  Age: 62 Year
  Sex: Female
  Weight: 79.4 kg

DRUGS (3)
  1. LYRICA [Suspect]
     Indication: PAIN
     Dosage: 75 MG, SINGLE
     Route: 048
     Dates: start: 20140222, end: 20140222
  2. LYRICA [Suspect]
     Indication: HERPES ZOSTER
  3. METHIMAZOLE [Concomitant]
     Indication: HYPERTHYROIDISM
     Dosage: 5 MG, 1X/DAY

REACTIONS (1)
  - Dizziness [Recovered/Resolved]
